FAERS Safety Report 5520359-1 (Version None)
Quarter: 2007Q4

REPORT INFORMATION
  Report Type: 
  Country: None (occurrence: None)
  Receive Date: 20071119
  Receipt Date: 20071109
  Transmission Date: 20080405
  Serious: Yes (Other)
  Sender: FDA-Public Use
  Company Number: PHBS2006TW00839

PATIENT
  Age: 85 Year
  Sex: Female

DRUGS (3)
  1. LESCOL XL [Suspect]
     Indication: HYPERCHOLESTEROLAEMIA
     Dosage: 80 MG/DAY
     Route: 048
     Dates: start: 20050914
  2. LESCOL XL [Suspect]
     Dosage: 40 MG/DAY
     Route: 048
     Dates: start: 20060510
  3. ESOMEPRAZOLE [Concomitant]
     Indication: HELICOBACTER INFECTION
     Dosage: 40 MG, QD

REACTIONS (4)
  - ALANINE AMINOTRANSFERASE INCREASED [None]
  - ASPARTATE AMINOTRANSFERASE INCREASED [None]
  - BLOOD ALKALINE PHOSPHATASE INCREASED [None]
  - HEPATITIS C ANTIBODY POSITIVE [None]
